FAERS Safety Report 18356203 (Version 1)
Quarter: 2020Q4

REPORT INFORMATION
  Report Type: Spontaneous
  Country: GB (occurrence: GB)
  Receive Date: 20201007
  Receipt Date: 20201007
  Transmission Date: 20210114
  Serious: Yes (Death, Other)
  Sender: FDA-Public Use
  Company Number: GB-SA-2020SA275411

PATIENT

DRUGS (1)
  1. ENOXAPARIN SODIUM. [Suspect]
     Active Substance: ENOXAPARIN SODIUM
     Indication: THROMBOSIS PROPHYLAXIS
     Dosage: 20MG ONCE-A-DAY FOR 14 DAYS THEN, INCREASED TO STANDARD TREATMENT DOSE THAN RENAL TREATMENT DOSE
     Route: 065
     Dates: start: 202005

REACTIONS (3)
  - Therapeutic drug monitoring analysis not performed [Fatal]
  - Prescribed underdose [Fatal]
  - Pulmonary embolism [Fatal]
